FAERS Safety Report 22023568 (Version 2)
Quarter: 2023Q1

REPORT INFORMATION
  Report Type: Spontaneous
  Country: US (occurrence: US)
  Receive Date: 20230223
  Receipt Date: 20230330
  Transmission Date: 20230418
  Serious: Yes (Hospitalization)
  Sender: FDA-Public Use
  Company Number: US-ENDO PHARMACEUTICALS INC-2023-000946

PATIENT
  Age: 48 Year
  Sex: Male
  Weight: 118.59 kg

DRUGS (15)
  1. XIAFLEX [Suspect]
     Active Substance: COLLAGENASE CLOSTRIDIUM HISTOLYTICUM
     Indication: Peyronie^s disease
     Dosage: 0.58 MG, UNKNOWN (FIRST DOSE)
     Route: 051
     Dates: start: 20221205
  2. XIAFLEX [Suspect]
     Active Substance: COLLAGENASE CLOSTRIDIUM HISTOLYTICUM
     Dosage: 0.58 UNKNOWN, UNKNOWN (SECOND DOSE)
     Route: 051
     Dates: start: 20221206
  3. BYSTOLIC [Concomitant]
     Active Substance: NEBIVOLOL HYDROCHLORIDE
     Indication: Product used for unknown indication
     Dosage: 20 MG, BID
     Route: 048
  4. ECOTRIN [Concomitant]
     Active Substance: ASPIRIN
     Indication: Product used for unknown indication
     Dosage: 325 MG, BID
     Route: 048
  5. AZOR                               /06230801/ [Concomitant]
     Indication: Product used for unknown indication
     Dosage: 1 DF, DAILY
     Route: 048
  6. GLUCOPHAGE [Concomitant]
     Active Substance: METFORMIN HYDROCHLORIDE
     Indication: Product used for unknown indication
     Dosage: 500 MG, BID (WITH MEALS)
     Route: 048
  7. LIPITOR [Concomitant]
     Active Substance: ATORVASTATIN CALCIUM
     Indication: Product used for unknown indication
     Dosage: 40 MG, OD (BED TIME)
     Route: 048
  8. PROTONIX                           /01263204/ [Concomitant]
     Indication: Product used for unknown indication
     Dosage: 40 MG, DAILY
     Route: 048
  9. ALDACTONE                          /00006201/ [Concomitant]
     Indication: Product used for unknown indication
     Dosage: 100 MG, DAILY
     Route: 048
  10. LOZOL [Concomitant]
     Active Substance: INDAPAMIDE
     Indication: Product used for unknown indication
     Dosage: 1.25 MG, DAILY
     Route: 048
  11. MULTI GI 5 [Concomitant]
     Indication: Product used for unknown indication
     Dosage: 1 DF, DAILY
     Route: 048
  12. NEO 40 [Concomitant]
     Indication: Product used for unknown indication
     Dosage: 1 DF, BID
     Route: 048
  13. TYLENOL EXTRA STRENGTH [Concomitant]
     Active Substance: ACETAMINOPHEN
     Indication: Product used for unknown indication
     Dosage: 1000 MG, TID (EVERY EIGHT HOURS)
     Route: 048
  14. SENOKOT-S [Concomitant]
     Active Substance: DOCUSATE SODIUM\SENNOSIDES
     Indication: Product used for unknown indication
     Dosage: 1 DF, BID
     Route: 048
  15. MIRALAX [Concomitant]
     Active Substance: POLYETHYLENE GLYCOL 3350
     Indication: Constipation
     Dosage: 17 G, DAILY
     Route: 048

REACTIONS (4)
  - Pulmonary embolism [Recovering/Resolving]
  - Jugular vein thrombosis [Recovering/Resolving]
  - Epistaxis [Recovered/Resolved]
  - Diverticulitis [Recovering/Resolving]

NARRATIVE: CASE EVENT DATE: 20230201
